FAERS Safety Report 7406425 (Version 3)
Quarter: 2013Q2

REPORT INFORMATION
  Report Type: Report from Study
  Country: US (occurrence: US)
  Receive Date: 20100601
  Receipt Date: 20130612
  Transmission Date: 20140414
  Serious: Yes (Hospitalization)
  Sender: FDA-Public Use
  Company Number: US-RB-009895-10

PATIENT
  Age: 59 Year
  Sex: Male

DRUGS (5)
  1. SUBOXONE [Suspect]
     Indication: DRUG DEPENDENCE
     Route: 060
     Dates: start: 2006, end: 201302
  2. SUBOXONE [Suspect]
     Indication: PAIN
     Route: 060
     Dates: start: 2013
  3. SUBOXONE FILM [Suspect]
     Indication: DRUG DEPENDENCE
     Dosage: SUBOXONE FILM
     Route: 060
     Dates: start: 201302, end: 201303
  4. CYMBALTA [Concomitant]
     Indication: DEPRESSION
     Route: 065
  5. CYMBALTA [Concomitant]
     Indication: PAIN
     Route: 065

REACTIONS (9)
  - Intervertebral disc degeneration [Not Recovered/Not Resolved]
  - Condition aggravated [Not Recovered/Not Resolved]
  - Intervertebral disc protrusion [Not Recovered/Not Resolved]
  - Condition aggravated [Not Recovered/Not Resolved]
  - Arthropathy [Not Recovered/Not Resolved]
  - Anxiety [Not Recovered/Not Resolved]
  - Prostate cancer [Recovered/Resolved]
  - Pain [Not Recovered/Not Resolved]
  - Depression [Not Recovered/Not Resolved]
